FAERS Safety Report 5522250-3 (Version None)
Quarter: 2007Q4

REPORT INFORMATION
  Report Type: 
  Country: None (occurrence: None)
  Receive Date: 20071120
  Receipt Date: 20071114
  Transmission Date: 20080405
  Serious: Yes (Hospitalization, Other)
  Sender: FDA-Public Use
  Company Number: PHBS2006JP05463

PATIENT
  Age: 48 Year
  Sex: Female

DRUGS (6)
  1. AREDIA [Suspect]
     Indication: METASTASES TO BONE
     Dosage: 45 MG, UNK
     Route: 042
     Dates: start: 20040812, end: 20060224
  2. CHEMOTHERAPEUTICS,OTHER [Concomitant]
  3. ANAESTHETICS, LOCAL [Concomitant]
     Route: 065
     Dates: start: 20060411
  4. XELODA [Concomitant]
     Dosage: 16 DF/D
     Route: 048
     Dates: start: 20031013, end: 20060318
  5. ZOLEDRONIC ACID [Suspect]
     Indication: METASTASES TO BONE
     Route: 042
  6. INCADRONIC ACID [Concomitant]
     Indication: METASTASES TO BONE

REACTIONS (12)
  - BRAIN OPERATION [None]
  - DENTAL NECROSIS [None]
  - GINGIVAL SWELLING [None]
  - GINGIVITIS [None]
  - MALIGNANT NEOPLASM PROGRESSION [None]
  - MONOPARESIS [None]
  - NERVOUS SYSTEM DISORDER [None]
  - OSTEOMYELITIS [None]
  - OSTEONECROSIS [None]
  - POOR DENTAL CONDITION [None]
  - PURULENT DISCHARGE [None]
  - TOOTH EXTRACTION [None]
